FAERS Safety Report 6223235-4 (Version None)
Quarter: 2009Q2

REPORT INFORMATION
  Report Type: 
  Country: None (occurrence: None)
  Receive Date: 20090611
  Receipt Date: 20090515
  Transmission Date: 20091009
  Serious: Yes (Other)
  Sender: FDA-Public Use
  Company Number: ES-AVENTIS-200915768GDDC

PATIENT
  Age: 66 Year
  Sex: Male

DRUGS (8)
  1. LANTUS [Suspect]
     Route: 058
     Dates: start: 20090312, end: 20090326
  2. HUMALOG [Suspect]
     Route: 058
     Dates: start: 20090312, end: 20090326
  3. OMEPRAZOLE [Concomitant]
     Route: 048
     Dates: start: 20090318, end: 20090327
  4. AUGMENTIN '125' [Concomitant]
     Route: 042
     Dates: start: 20090318, end: 20090327
  5. HIBOR [Concomitant]
     Route: 058
     Dates: start: 20090312, end: 20090327
  6. CREON [Concomitant]
     Dosage: DOSE: 40 K
     Route: 048
     Dates: start: 20090312, end: 20090326
  7. NOLOTIL                            /00473101/ [Concomitant]
     Route: 042
  8. ACETAMINOPHEN [Concomitant]
     Route: 042
     Dates: start: 20090318, end: 20090327

REACTIONS (2)
  - CEREBRAL INFARCTION [None]
  - HYPOGLYCAEMIC COMA [None]
